FAERS Safety Report 15264409 (Version 1)
Quarter: 2018Q3

REPORT INFORMATION
  Report Type: Spontaneous
  Country: US (occurrence: US)
  Receive Date: 20180722
  Receipt Date: 20180722
  Transmission Date: 20181010
  Serious: Yes (Hospitalization)
  Sender: FDA-Public Use
  Company Number: None

PATIENT
  Age: 58 Year
  Sex: Female
  Weight: 55.8 kg

DRUGS (17)
  1. DASATINIB. [Suspect]
     Active Substance: DASATINIB
     Indication: ACUTE LYMPHOCYTIC LEUKAEMIA
     Route: 048
  2. NICOTINE TRANSDERMAL SYSTEM [Concomitant]
     Active Substance: NICOTINE
  3. SENNA [Concomitant]
     Active Substance: SENNA LEAF\SENNOSIDES\SENNOSIDES A AND B
  4. AMLODIPINE [Concomitant]
     Active Substance: AMLODIPINE BESYLATE
  5. ERGOCALCIFEROL. [Concomitant]
     Active Substance: ERGOCALCIFEROL
  6. GLUCAGON. [Concomitant]
     Active Substance: GLUCAGON
  7. DOCUSATE [Concomitant]
     Active Substance: DOCUSATE
  8. LIDOCAINE PATCH [Concomitant]
     Active Substance: LIDOCAINE
  9. DALTEPARIN [Concomitant]
     Active Substance: DALTEPARIN
  10. INSULIN LISPRO [Concomitant]
     Active Substance: INSULIN LISPRO
  11. ACYCLOVIR. [Concomitant]
     Active Substance: ACYCLOVIR
  12. SULFAMETHOXAZOLE?TRIMETHOPRIM [Concomitant]
     Active Substance: SULFAMETHOXAZOLE\TRIMETHOPRIM
  13. PROCHLORPERAZINE. [Concomitant]
     Active Substance: PROCHLORPERAZINE
  14. OXYCODONE [Concomitant]
     Active Substance: OXYCODONE
  15. FAMOTADINE [Concomitant]
  16. FUCONAZOLE [Concomitant]
  17. LEVOFLOXACIN. [Concomitant]
     Active Substance: LEVOFLOXACIN

REACTIONS (7)
  - Asthenia [None]
  - Failure to thrive [None]
  - Dyspnoea [None]
  - Pleural effusion [None]
  - Diarrhoea [None]
  - Cough [None]
  - Acute kidney injury [None]

NARRATIVE: CASE EVENT DATE: 20180302
